FAERS Safety Report 7961083-5 (Version None)
Quarter: 2011Q4

REPORT INFORMATION
  Report Type: 
  Country: None (occurrence: None)
  Receive Date: 20111202
  Receipt Date: 20111121
  Transmission Date: 20120403
  Serious: Yes (Other)
  Sender: FDA-Public Use
  Company Number: 1000024742

PATIENT
  Age: 39 Year
  Sex: Female
  Weight: 55 kg

DRUGS (1)
  1. CITALOPRAM HYDROBROMIDE [Suspect]
     Dosage: 20 MG, ONCE, ORAL
     Route: 048
     Dates: start: 20110720, end: 20110720

REACTIONS (5)
  - GLOMERULAR FILTRATION RATE DECREASED [None]
  - SWELLING [None]
  - BLOOD PRESSURE INCREASED [None]
  - PROTEINURIA [None]
  - DRUG HYPERSENSITIVITY [None]
